FAERS Safety Report 5008697-2 (Version None)
Quarter: 2006Q2

REPORT INFORMATION
  Report Type: 
  Country: None (occurrence: None)
  Receive Date: 20060523
  Receipt Date: 20060516
  Transmission Date: 20061013
  Serious: Yes (Hospitalization)
  Sender: FDA-Public Use
  Company Number: HK-SANOFI-SYNTHELABO-F01200601229

PATIENT
  Sex: Male

DRUGS (10)
  1. HYDROCORTISONE ACETATE [Concomitant]
     Indication: ECZEMA
     Dosage: TWICE DAILY PRN
  2. EMULSIFYING OINTMENT [Concomitant]
     Indication: DRY SKIN
     Dosage: UNK
     Route: 065
     Dates: start: 20050908
  3. MICARDIS [Suspect]
     Dates: start: 20050718, end: 20060309
  4. AGGRENOX [Suspect]
     Indication: CEREBROVASCULAR ACCIDENT
     Dosage: 200MG/25MG BID
     Route: 048
     Dates: start: 20050718, end: 20060309
  5. METFORMIN [Concomitant]
     Indication: DIABETES MELLITUS
     Dosage: 500 MG
     Route: 048
     Dates: start: 20060116
  6. LANTACID [Concomitant]
     Indication: EPIGASTRIC DISCOMFORT
     Dosage: 3 TABLETS
     Route: 048
  7. CATAFLAM [Concomitant]
     Indication: SPINAL COLUMN STENOSIS
     Route: 048
  8. SENOKOT [Concomitant]
     Indication: CONSTIPATION
     Dosage: 7.5 MG
     Route: 048
  9. METAMUCIL [Concomitant]
     Indication: CONSTIPATION
     Route: 048
     Dates: start: 20051206
  10. CLOPIDOGREL [Suspect]
     Indication: CEREBROVASCULAR ACCIDENT
     Route: 048
     Dates: start: 20050718, end: 20060305

REACTIONS (2)
  - RECTAL ULCER [None]
  - URINARY TRACT INFECTION [None]
